FAERS Safety Report 8908231 (Version 1)
Quarter: 2012Q4

REPORT INFORMATION
  Report Type: 
  Country: BR (occurrence: BR)
  Receive Date: 20121114
  Receipt Date: 20121114
  Transmission Date: 20130627
  Serious: Yes (Hospitalization, Other)
  Sender: FDA-Public Use
  Company Number: PHHY2012BR104114

PATIENT
  Sex: Female
  Weight: 90 kg

DRUGS (5)
  1. FORASEQ [Suspect]
     Indication: ASTHMA
     Dosage: 1 DF, BID
     Route: 048
  2. XOLAIR [Suspect]
     Indication: ASTHMA
     Dosage: 1 DF, UNK
     Route: 042
  3. PULMICORT [Concomitant]
     Dosage: 2 ml, UNK
     Route: 048
  4. ZADITEN SRO [Concomitant]
     Indication: ASTHMA
     Route: 048
  5. BUDECORT [Concomitant]
     Dosage: 1 dose in the morning and 1 at night
     Route: 048

REACTIONS (9)
  - Somnolence [Recovered/Resolved]
  - Feeling abnormal [Recovered/Resolved]
  - Fear [Recovered/Resolved]
  - Asthma [Recovered/Resolved]
  - Pneumonia [Recovered/Resolved]
  - Rhinitis [Recovered/Resolved]
  - Bacterial infection [Recovered/Resolved]
  - Cholelithiasis [Not Recovered/Not Resolved]
  - Incorrect route of drug administration [Unknown]
